FAERS Safety Report 26136850 (Version 1)
Quarter: 2025Q4

REPORT INFORMATION
  Report Type: Spontaneous
  Country: US (occurrence: None)
  Receive Date: 20251209
  Receipt Date: 20251209
  Transmission Date: 20260117
  Serious: Yes (Hospitalization)
  Sender: FDA-CTU
  Company Number: None

PATIENT
  Age: 41 Year
  Sex: Male

DRUGS (1)
  1. DULOXETINE [Suspect]
     Active Substance: DULOXETINE
     Indication: Depression
     Dosage: 30 MG BID PO
     Route: 048
     Dates: start: 20250502, end: 20250709

REACTIONS (5)
  - Insomnia [None]
  - Irritability [None]
  - Paranoia [None]
  - Suicidal ideation [None]
  - Tinnitus [None]

NARRATIVE: CASE EVENT DATE: 20250707
